FAERS Safety Report 5208861-3 (Version None)
Quarter: 2007Q1

REPORT INFORMATION
  Report Type: 
  Country: None (occurrence: None)
  Receive Date: 20070116
  Receipt Date: 20070110
  Transmission Date: 20070707
  Serious: Yes (Hospitalization)
  Sender: FDA-Public Use
  Company Number: US-BRISTOL-MYERS SQUIBB COMPANY-13638242

PATIENT
  Age: 64 Year
  Sex: Female
  Weight: 93 kg

DRUGS (15)
  1. CISPLATIN [Suspect]
     Indication: NON-SMALL CELL LUNG CANCER
     Route: 042
     Dates: start: 20061017, end: 20061017
  2. GEMCITABINE [Suspect]
     Indication: NON-SMALL CELL LUNG CANCER
     Route: 042
     Dates: start: 20061024, end: 20061024
  3. ANZEMET [Concomitant]
     Route: 042
     Dates: start: 20061024, end: 20061024
  4. LORAZEPAM [Concomitant]
     Route: 048
     Dates: start: 20061017, end: 20061024
  5. SODIUM CHLORIDE [Concomitant]
     Route: 042
     Dates: start: 20061024, end: 20061024
  6. DEXTROSE 5% AND SODIUM CHLORIDE 0.45% IN PLASTIC CONTAINER [Concomitant]
     Route: 042
     Dates: start: 20061031, end: 20061101
  7. VITAMIN CAP [Concomitant]
     Route: 042
     Dates: start: 20061031, end: 20061101
  8. POTASSIUM CHLORIDE [Concomitant]
     Route: 042
     Dates: start: 20061031, end: 20061031
  9. MS CONTIN [Concomitant]
     Route: 048
     Dates: start: 20061005
  10. LISINOPRIL [Concomitant]
     Route: 048
     Dates: start: 20020101
  11. TYLENOL [Concomitant]
     Route: 048
     Dates: start: 20060701
  12. PROCHLORPERAZINE [Concomitant]
     Route: 048
     Dates: start: 20061017
  13. PRILOSEC [Concomitant]
     Route: 048
     Dates: start: 20061024
  14. PROCRIT [Concomitant]
     Route: 058
     Dates: start: 20061031
  15. POTASSIUM ACETATE [Concomitant]
     Route: 048
     Dates: start: 20061018

REACTIONS (1)
  - CONFUSIONAL STATE [None]
